FAERS Safety Report 6263694-4 (Version None)
Quarter: 2009Q3

REPORT INFORMATION
  Report Type: 
  Country: None (occurrence: None)
  Receive Date: 20090710
  Receipt Date: 20090630
  Transmission Date: 20100115
  Serious: Yes (Hospitalization)
  Sender: FDA-Public Use
  Company Number: US-PFIZER INC-2009234165

PATIENT
  Age: 50 Year
  Sex: Female

DRUGS (2)
  1. XANAX [Suspect]
  2. MILNACIPRAN HYDROCHLORIDE [Suspect]
     Indication: FIBROMYALGIA

REACTIONS (3)
  - EUPHORIC MOOD [None]
  - INTENTIONAL OVERDOSE [None]
  - SUICIDE ATTEMPT [None]
